FAERS Safety Report 20684093 (Version 2)
Quarter: 2022Q2

REPORT INFORMATION
  Report Type: Report from Study
  Country: US (occurrence: None)
  Receive Date: 20220407
  Receipt Date: 20220511
  Transmission Date: 20220721
  Serious: Yes (Hospitalization)
  Sender: FDA-Public Use
  Company Number: US-ROCHE-3020092

PATIENT
  Age: 60 Year
  Sex: Male

DRUGS (6)
  1. ATEZOLIZUMAB [Suspect]
     Active Substance: ATEZOLIZUMAB
     Indication: Thyroid cancer
     Route: 042
  2. BEVACIZUMAB [Suspect]
     Active Substance: BEVACIZUMAB
     Indication: Thyroid cancer
     Route: 042
  3. PACLITAXEL [Suspect]
     Active Substance: PACLITAXEL
     Indication: Thyroid cancer
     Route: 042
  4. PACLITAXEL [Suspect]
     Active Substance: PACLITAXEL
     Indication: Thyroid cancer
     Route: 042
  5. COBIMETINIB [Suspect]
     Active Substance: COBIMETINIB
     Indication: Thyroid cancer
     Route: 048
  6. VEMURAFENIB [Suspect]
     Active Substance: VEMURAFENIB
     Indication: Thyroid cancer
     Route: 048

REACTIONS (1)
  - Hypoxia [Recovered/Resolved]

NARRATIVE: CASE EVENT DATE: 20220203
